FAERS Safety Report 19088734 (Version 1)
Quarter: 2021Q2

REPORT INFORMATION
  Report Type: Spontaneous
  Country: JP (occurrence: JP)
  Receive Date: 20210403
  Receipt Date: 20210403
  Transmission Date: 20210717
  Serious: Yes (Other)
  Sender: FDA-Public Use
  Company Number: JP-SUN PHARMACEUTICAL INDUSTRIES LTD-2021RR-289116

PATIENT
  Age: 58 Year
  Sex: Female

DRUGS (8)
  1. PEMETREXED. [Suspect]
     Active Substance: PEMETREXED
     Dosage: 3 CYCLES
     Route: 065
  2. GEMCITABINE. [Suspect]
     Active Substance: GEMCITABINE
     Indication: ADENOCARCINOMA
     Dosage: SIX CYCLES
     Route: 065
  3. BEVACIZUMAB. [Suspect]
     Active Substance: BEVACIZUMAB
     Indication: ADENOCARCINOMA METASTATIC
     Dosage: THREE CYCLES
     Route: 065
  4. ALECTINIB. [Suspect]
     Active Substance: ALECTINIB
     Indication: ADENOCARCINOMA METASTATIC
     Dosage: UNK
     Route: 065
  5. CERITINIB [Suspect]
     Active Substance: CERITINIB
     Indication: ADENOCARCINOMA METASTATIC
     Dosage: UNK
     Route: 065
  6. LORLATINIB [Suspect]
     Active Substance: LORLATINIB
     Indication: ADENOCARCINOMA METASTATIC
     Dosage: NINETH?LINE TREATMENT
     Route: 065
  7. DOCETAXEL. [Suspect]
     Active Substance: DOCETAXEL
     Indication: ADENOCARCINOMA
     Dosage: FIVE CYCLES
     Route: 065
  8. PEMETREXED. [Suspect]
     Active Substance: PEMETREXED
     Indication: ADENOCARCINOMA
     Dosage: 13 CYCLE
     Route: 065

REACTIONS (2)
  - Disease recurrence [Unknown]
  - Disease progression [Unknown]
